FAERS Safety Report 23082669 (Version 1)
Quarter: 2023Q4

REPORT INFORMATION
  Report Type: Spontaneous
  Country: GB (occurrence: GB)
  Receive Date: 20231019
  Receipt Date: 20231019
  Transmission Date: 20240109
  Serious: Yes (Other)
  Sender: FDA-Public Use
  Company Number: GB-Accord-386181

PATIENT
  Age: 47 Year
  Sex: Female

DRUGS (6)
  1. LETROZOLE [Suspect]
     Active Substance: LETROZOLE
     Indication: Hormone receptor positive breast cancer
  2. RIBOCICLIB [Concomitant]
     Active Substance: RIBOCICLIB
     Indication: Metastases to bone
  3. GOSERELIN [Concomitant]
     Active Substance: GOSERELIN
     Indication: Metastases to bone
  4. GOSERELIN [Concomitant]
     Active Substance: GOSERELIN
     Indication: Breast cancer stage III
  5. RIBOCICLIB [Concomitant]
     Active Substance: RIBOCICLIB
     Indication: Breast cancer stage III
  6. LETROZOLE [Suspect]
     Active Substance: LETROZOLE
     Indication: Metastases to bone

REACTIONS (2)
  - Pain [Unknown]
  - Oedema [Recovering/Resolving]
